FAERS Safety Report 14283557 (Version 8)
Quarter: 2024Q3

REPORT INFORMATION
  Report Type: Spontaneous
  Country: ES (occurrence: ES)
  Receive Date: 20171213
  Receipt Date: 20240924
  Transmission Date: 20241017
  Serious: Yes (Hospitalization, Other)
  Sender: NOVARTIS
  Company Number: PHHY2017ES184888

PATIENT
  Age: 63 Year
  Sex: Female

DRUGS (7)
  1. IMATINIB [Interacting]
     Active Substance: IMATINIB
     Indication: Chronic myeloid leukaemia
     Dosage: 400 MG, QD
     Route: 065
  2. IMATINIB [Interacting]
     Active Substance: IMATINIB
     Indication: Systemic scleroderma
  3. SERTRALINE HYDROCHLORIDE [Interacting]
     Active Substance: SERTRALINE HYDROCHLORIDE
     Indication: Product used for unknown indication
     Dosage: 100 MG, 1X/DAY
     Route: 065
  4. DULOXETINE [Concomitant]
     Active Substance: DULOXETINE
     Indication: Product used for unknown indication
     Dosage: UNK
     Route: 065
  5. BROMAZEPAM [Concomitant]
     Active Substance: BROMAZEPAM
     Indication: Product used for unknown indication
     Dosage: UNK
     Route: 065
  6. OMEPRAZOLE [Concomitant]
     Active Substance: OMEPRAZOLE
     Indication: Product used for unknown indication
     Dosage: UNK
     Route: 065
  7. DIACEREIN [Concomitant]
     Active Substance: DIACEREIN
     Indication: Product used for unknown indication
     Dosage: UNK
     Route: 065

REACTIONS (11)
  - Hepatic encephalopathy [Recovered/Resolved]
  - Hepatic cirrhosis [Recovered/Resolved]
  - Hepatotoxicity [Recovered/Resolved]
  - Hepatic failure [Recovered/Resolved]
  - Drug interaction [Recovered/Resolved]
  - Abdominal pain [Recovering/Resolving]
  - Choluria [Recovering/Resolving]
  - Abdominal pain upper [Recovering/Resolving]
  - Vomiting [Recovering/Resolving]
  - Coagulopathy [Recovering/Resolving]
  - Hepatitis acute [Recovering/Resolving]
